FAERS Safety Report 7482626-4 (Version None)
Quarter: 2011Q2

REPORT INFORMATION
  Report Type: 
  Country: None (occurrence: None)
  Receive Date: 20110516
  Receipt Date: 20110505
  Transmission Date: 20111010
  Serious: Yes (Other)
  Sender: FDA-Public Use
  Company Number: PHHY2011DE39016

PATIENT
  Age: 58 Year
  Sex: Female

DRUGS (2)
  1. CHEMO [Concomitant]
  2. ZOMETA [Suspect]
     Route: 042

REACTIONS (5)
  - DENTAL FISTULA [None]
  - OSTEONECROSIS OF JAW [None]
  - PURULENCE [None]
  - OSTEITIS [None]
  - ABSCESS JAW [None]
